FAERS Safety Report 4846365-8 (Version None)
Quarter: 2005Q4

REPORT INFORMATION
  Report Type: 
  Country: None (occurrence: None)
  Receive Date: 20051125
  Receipt Date: 20051115
  Transmission Date: 20060501
  Serious: Yes (Death, Hospitalization, Other)
  Sender: FDA-Public Use
  Company Number: 2005151474

PATIENT
  Age: 64 Year
  Sex: Male
  Weight: 58.3 kg

DRUGS (10)
  1. UNASYN [Suspect]
     Indication: PNEUMONIA
     Dosage: 6 GRAM (1 IN 2 D), INTRAVENOUS
     Route: 042
     Dates: start: 20051019, end: 20051023
  2. VOLTAREN [Suspect]
     Indication: PYREXIA
     Dosage: 25 MG (1 IN 2 D), INTRAVENOUS
     Route: 042
     Dates: start: 20051023, end: 20051026
  3. MEROPEN (MEROPEN) [Suspect]
     Indication: PNEUMONIA
     Dosage: 1 GRAM (1 IN 3 D), INTRAVENOUS
     Route: 042
     Dates: start: 20051023, end: 20051026
  4. PASIL (PAZUFLOXACIN MESILATE) [Suspect]
     Indication: PNEUMONIA
     Dosage: 1 GRAM (1 IN 2 D), INTRAVENOUS
     Route: 042
     Dates: start: 20051026, end: 20051030
  5. MEIACT (CEFDITOREN PIVOXIL) [Suspect]
     Indication: PNEUMONIA
     Dosage: 300 MG (1 IN 3 D), ORAL
     Route: 048
     Dates: start: 20051018, end: 20051019
  6. WARFARIN (WARFARIN) [Concomitant]
  7. CARBOCISTEINE (CARBOCISTEINE) [Concomitant]
  8. NEOPHAGEN (GLYCYRRHIZINATE POTASSIUM) [Concomitant]
  9. FAMOTIDINE [Concomitant]
  10. DRUG UNSPECIFIED [Concomitant]

REACTIONS (7)
  - BLOOD PRESSURE IMMEASURABLE [None]
  - HEPATIC FAILURE [None]
  - PNEUMONIA [None]
  - RENAL FAILURE [None]
  - RESPIRATORY RATE INCREASED [None]
  - STEVENS-JOHNSON SYNDROME [None]
  - UNRESPONSIVE TO VERBAL STIMULI [None]
